APPROVED DRUG PRODUCT: IRINOTECAN HYDROCHLORIDE
Active Ingredient: IRINOTECAN HYDROCHLORIDE
Strength: 40MG/2ML (20MG/ML)
Dosage Form/Route: INJECTABLE;INJECTION
Application: A078589 | Product #001 | TE Code: AP
Applicant: ACTAVIS TOTOWA LLC
Approved: Feb 27, 2008 | RLD: No | RS: No | Type: RX